FAERS Safety Report 25339627 (Version 1)
Quarter: 2025Q2

REPORT INFORMATION
  Report Type: Spontaneous
  Country: US (occurrence: US)
  Receive Date: 20250521
  Receipt Date: 20250521
  Transmission Date: 20250717
  Serious: No
  Sender: ALEXION PHARMACEUTICALS
  Company Number: US-PROCTER+GAMBLE-PH25005018

PATIENT
  Age: 92 Year

DRUGS (1)
  1. PRILOSEC OTC [Suspect]
     Active Substance: OMEPRAZOLE MAGNESIUM
     Dosage: 1 TABLET, 1 /DAY

REACTIONS (5)
  - Muscular weakness [Recovering/Resolving]
  - Dizziness [Unknown]
  - Product use in unapproved indication [Unknown]
  - Off label use [Unknown]
  - Incorrect product administration duration [Unknown]
